FAERS Safety Report 7531735-X (Version None)
Quarter: 2011Q2

REPORT INFORMATION
  Report Type: 
  Country: None (occurrence: None)
  Receive Date: 20110608
  Receipt Date: 20110525
  Transmission Date: 20111010
  Serious: Yes (Other)
  Sender: FDA-Public Use
  Company Number: US-BAYER-201030628NA

PATIENT
  Sex: Female
  Weight: 81.633 kg

DRUGS (5)
  1. LORTAB [Concomitant]
     Dosage: UNK
     Route: 048
     Dates: start: 20061020
  2. DARVOCET-N 50 [Concomitant]
     Dosage: UNK
     Dates: start: 20061009
  3. YASMIN [Suspect]
     Indication: ORAL CONTRACEPTION
     Dosage: UNK UNK, UNK
     Route: 048
     Dates: start: 20050101, end: 20080101
  4. HERBAL PREPARATION [Concomitant]
  5. VITAMIN TAB [Concomitant]

REACTIONS (2)
  - GALLBLADDER DISORDER [None]
  - CHOLECYSTITIS CHRONIC [None]
